FAERS Safety Report 10961122 (Version 11)
Quarter: 2018Q3

REPORT INFORMATION
  Report Type: Report from Study
  Country: US (occurrence: US)
  Receive Date: 20150327
  Receipt Date: 20180926
  Transmission Date: 20181010
  Serious: Yes (Hospitalization)
  Sender: FDA-Public Use
  Company Number: US-ACTELION-A-US2015-111065

PATIENT
  Age: 42 Year
  Sex: Female
  Weight: 90.7 kg

DRUGS (4)
  1. FLOLAN [Concomitant]
     Active Substance: EPOPROSTENOL SODIUM
     Dosage: 9 NG/KG, PER MIN
  2. REVATIO [Concomitant]
     Active Substance: SILDENAFIL CITRATE
  3. OPSUMIT [Suspect]
     Active Substance: MACITENTAN
     Dosage: 10 MG, QD
     Route: 048
     Dates: start: 20141203, end: 201807
  4. OPSUMIT [Suspect]
     Active Substance: MACITENTAN
     Indication: PULMONARY ARTERIAL HYPERTENSION
     Dosage: 10 MG, QD
     Route: 048
     Dates: start: 2018

REACTIONS (13)
  - Bacterial infection [Unknown]
  - Liver function test increased [Unknown]
  - Abdominal pain upper [Unknown]
  - Catheter site erythema [Unknown]
  - Weight decreased [Unknown]
  - Malaise [Unknown]
  - Chest discomfort [Unknown]
  - Device related infection [Unknown]
  - Nausea [Unknown]
  - Catheter placement [Unknown]
  - Device connection issue [Unknown]
  - Catheter site infection [Unknown]
  - Chest pain [Unknown]
